FAERS Safety Report 17289400 (Version 1)
Quarter: 2020Q1

REPORT INFORMATION
  Report Type: Spontaneous
  Country: JP (occurrence: JP)
  Receive Date: 20200120
  Receipt Date: 20200120
  Transmission Date: 20200409
  Serious: Yes (Other)
  Sender: FDA-Public Use
  Company Number: JP-JNJFOC-20170707471

PATIENT
  Age: 57 Year
  Sex: Male

DRUGS (31)
  1. XARELTO [Concomitant]
     Active Substance: RIVAROXABAN
     Route: 048
     Dates: start: 20150503
  2. MOHRUS [Concomitant]
     Active Substance: KETOPROFEN
     Route: 062
     Dates: start: 20130718, end: 20170206
  3. DEPAS [Concomitant]
     Route: 048
     Dates: start: 20140713
  4. LOXOPROFEN [Concomitant]
     Active Substance: LOXOPROFEN
     Route: 048
     Dates: start: 20160518, end: 20160622
  5. TAIOZET [Concomitant]
     Dosage: ONCE/DAY
     Route: 051
     Dates: start: 20161227, end: 20161227
  6. REPAGLINIDE. [Concomitant]
     Active Substance: REPAGLINIDE
     Indication: TYPE 2 DIABETES MELLITUS
     Route: 048
     Dates: start: 20180805
  7. HYALEIN [Concomitant]
     Active Substance: HYALURONATE SODIUM
     Route: 031
     Dates: start: 20170305
  8. LAMISIL [Concomitant]
     Active Substance: TERBINAFINE HYDROCHLORIDE
     Route: 062
     Dates: start: 20161016, end: 20161217
  9. VERAPAMIL HYDROCHLORIDE. [Concomitant]
     Active Substance: VERAPAMIL HYDROCHLORIDE
     Route: 048
     Dates: start: 20150308
  10. LOXOPROFEN [Concomitant]
     Active Substance: LOXOPROFEN
     Route: 048
     Dates: start: 20160522, end: 20160626
  11. LIDOCAINE. [Concomitant]
     Active Substance: LIDOCAINE
     Dosage: ONCE/DAY
     Route: 051
     Dates: start: 20161227, end: 20161227
  12. LIDOCAINE. [Concomitant]
     Active Substance: LIDOCAINE
     Dosage: ONCE/DAY
     Route: 051
     Dates: start: 20170207, end: 20170207
  13. LAMISIL [Concomitant]
     Active Substance: TERBINAFINE HYDROCHLORIDE
     Route: 062
     Dates: start: 20160829, end: 20160918
  14. LAMISIL [Concomitant]
     Active Substance: TERBINAFINE HYDROCHLORIDE
     Route: 062
     Dates: start: 20160919, end: 20161015
  15. LAMISIL [Concomitant]
     Active Substance: TERBINAFINE HYDROCHLORIDE
     Route: 062
     Dates: start: 20161218
  16. CELECOX [Concomitant]
     Active Substance: CELECOXIB
     Route: 048
     Dates: start: 20160518, end: 20160616
  17. TAIOZET [Concomitant]
     Dosage: ONCE/DAY
     Route: 051
     Dates: start: 20170207, end: 20170207
  18. POVIDONE-IODINE. [Concomitant]
     Active Substance: POVIDONE-IODINE
     Route: 049
     Dates: start: 20151220, end: 20160717
  19. POVIDONE-IODINE. [Concomitant]
     Active Substance: POVIDONE-IODINE
     Route: 049
     Dates: start: 20160718
  20. TRAZENTA [Concomitant]
     Active Substance: LINAGLIPTIN
     Indication: TYPE 2 DIABETES MELLITUS
     Dosage: STARE DATE: EARLY DEC-2011
     Route: 048
     Dates: start: 201112, end: 20180821
  21. PATELL [Concomitant]
     Route: 062
     Dates: start: 20170619
  22. SKYRON [Concomitant]
     Active Substance: FLUTICASONE PROPIONATE
     Dosage: START DATE: BEFORE 2009
     Route: 045
     Dates: end: 20180221
  23. NEXIUM [Concomitant]
     Active Substance: ESOMEPRAZOLE MAGNESIUM
     Route: 048
     Dates: start: 20100902
  24. HYALEIN [Concomitant]
     Active Substance: HYALURONATE SODIUM
     Route: 031
     Dates: start: 20100902, end: 20161109
  25. LAMISIL [Concomitant]
     Active Substance: TERBINAFINE HYDROCHLORIDE
     Route: 062
     Dates: start: 20141109, end: 20160828
  26. METFORMIN HYDROCHLORIDE. [Concomitant]
     Active Substance: METFORMIN HYDROCHLORIDE
     Indication: TYPE 2 DIABETES MELLITUS
     Route: 048
     Dates: start: 20180805
  27. CANAGLIFLOZIN [Suspect]
     Active Substance: CANAGLIFLOZIN
     Indication: TYPE 2 DIABETES MELLITUS
     Route: 048
     Dates: start: 20160312, end: 20180821
  28. MOHRUS [Concomitant]
     Active Substance: KETOPROFEN
     Route: 062
     Dates: start: 20130718, end: 20170206
  29. SOLMIRAN [Concomitant]
     Route: 048
     Dates: start: 20140518, end: 20180221
  30. MUCOSTA [Concomitant]
     Active Substance: REBAMIPIDE
     Route: 031
     Dates: start: 20160522, end: 20160816
  31. YAKUBAN [Concomitant]
     Active Substance: FLURBIPROFEN
     Route: 062
     Dates: start: 20170207, end: 20170619

REACTIONS (16)
  - Anxiety disorder [Not Recovered/Not Resolved]
  - Hepatic function abnormal [Not Recovered/Not Resolved]
  - Anxiety disorder [Recovered/Resolved]
  - Back pain [Recovered/Resolved]
  - Haematocrit increased [Not Recovered/Not Resolved]
  - Muscle spasms [Not Recovered/Not Resolved]
  - Dizziness [Not Recovered/Not Resolved]
  - Rhinitis allergic [Not Recovered/Not Resolved]
  - Motion sickness [Recovered/Resolved]
  - Blepharitis [Not Recovered/Not Resolved]
  - Rhinitis allergic [Recovered/Resolved]
  - Hypertriglyceridaemia [Not Recovered/Not Resolved]
  - Blood pressure inadequately controlled [Not Recovered/Not Resolved]
  - Penile haemorrhage [Recovered/Resolved]
  - Platelet count decreased [Not Recovered/Not Resolved]
  - Neuralgia [Not Recovered/Not Resolved]

NARRATIVE: CASE EVENT DATE: 20160807
